FAERS Safety Report 16080562 (Version 1)
Quarter: 2019Q1

REPORT INFORMATION
  Report Type: Spontaneous
  Country: CA (occurrence: CA)
  Receive Date: 20190315
  Receipt Date: 20190315
  Transmission Date: 20190418
  Serious: Yes (Hospitalization)
  Sender: FDA-Public Use
  Company Number: CA-BAXTER-2019BAX005088

PATIENT
  Age: 77 Year
  Sex: Male

DRUGS (1)
  1. OSMITROL [Suspect]
     Active Substance: MANNITOL
     Indication: INTRAOCULAR PRESSURE TEST
     Dosage: DOSAGE FORM: SOLUTION INTRAVENOUS
     Route: 042

REACTIONS (3)
  - Erythema [Unknown]
  - Pain in extremity [Unknown]
  - Oedema peripheral [Unknown]
